FAERS Safety Report 5917598-4 (Version None)
Quarter: 2008Q4

REPORT INFORMATION
  Report Type: 
  Country: None (occurrence: None)
  Receive Date: 20081010
  Receipt Date: 20081010
  Transmission Date: 20090506
  Serious: Yes (Hospitalization)
  Sender: FDA-Public Use
  Company Number: None

PATIENT
  Sex: Female
  Weight: 84.82 kg

DRUGS (5)
  1. CYCLOPHOSPHAMIDE [Suspect]
     Dosage: 1600 MG
     Dates: start: 20080728, end: 20080728
  2. DOXORUBICIN HYDROCHLORIDE [Suspect]
     Dosage: 105 MG
     Dates: end: 20080728
  3. PREDNISONE TAB [Suspect]
     Dosage: 1000 MG
     Dates: end: 20080801
  4. RITUXIMAB (MOAB C2B8 ANTI CD20, CHIMERIC) [Suspect]
     Dosage: 800 MG
     Dates: end: 20080728
  5. VINCRISTINE SULFATE [Suspect]
     Dosage: 2 MG
     Dates: end: 20080728

REACTIONS (1)
  - FEBRILE NEUTROPENIA [None]
